FAERS Safety Report 20165772 (Version 1)
Quarter: 2021Q4

REPORT INFORMATION
  Report Type: Spontaneous
  Country: US (occurrence: None)
  Receive Date: 20211208
  Receipt Date: 20211208
  Transmission Date: 20220304
  Serious: Yes (Life-Threatening, Hospitalization)
  Sender: FDA-Public Use
  Company Number: None

PATIENT
  Sex: Female
  Weight: 77.56 kg

DRUGS (4)
  1. NP THYROID [Suspect]
     Active Substance: LEVOTHYROXINE\LIOTHYRONINE
     Indication: Blood thyroid stimulating hormone decreased
     Route: 048
     Dates: end: 20201215
  2. VITAMIN B [Concomitant]
     Active Substance: VITAMIN B
  3. VITAMIN C [Concomitant]
     Active Substance: ASCORBIC ACID
  4. VITAMIN D3 [Suspect]
     Active Substance: CHOLECALCIFEROL

REACTIONS (10)
  - Recalled product administered [None]
  - Weight decreased [None]
  - Mania [None]
  - Syncope [None]
  - Insomnia [None]
  - Hypertension [None]
  - Atrial fibrillation [None]
  - Dizziness [None]
  - Fall [None]
  - Hip fracture [None]
